FAERS Safety Report 5958332-1 (Version None)
Quarter: 2008Q4

REPORT INFORMATION
  Report Type: 
  Country: None (occurrence: None)
  Receive Date: 20081119
  Receipt Date: 20081111
  Transmission Date: 20090506
  Serious: Yes (Hospitalization, Other)
  Sender: FDA-Public Use
  Company Number: GB-AMGEN-UK318523

PATIENT
  Sex: Female

DRUGS (3)
  1. ARANESP [Suspect]
     Indication: DRUG USE FOR UNKNOWN INDICATION
     Dates: start: 20070801
  2. GLUCOSIDE [Concomitant]
  3. CARDIAC MEDICATION NOS [Concomitant]

REACTIONS (4)
  - ANAPHYLACTIC REACTION [None]
  - BRONCHOSPASM [None]
  - OEDEMA MOUTH [None]
  - PHARYNGEAL OEDEMA [None]
